FAERS Safety Report 4567110-X (Version None)
Quarter: 2005Q1

REPORT INFORMATION
  Report Type: 
  Country: None (occurrence: None)
  Receive Date: 20050201
  Receipt Date: 20050120
  Transmission Date: 20050727
  Serious: Yes (Hospitalization, Other)
  Sender: FDA-Public Use
  Company Number: PT-JNJFOC-20050105115

PATIENT
  Sex: Female
  Weight: 25 kg

DRUGS (1)
  1. RISPERDAL [Suspect]
     Indication: DRUG USE FOR UNKNOWN INDICATION

REACTIONS (4)
  - ACCIDENTAL OVERDOSE [None]
  - AGITATION [None]
  - COORDINATION ABNORMAL [None]
  - EYE MOVEMENT DISORDER [None]
